FAERS Safety Report 13668367 (Version 5)
Quarter: 2017Q4

REPORT INFORMATION
  Report Type: Report from Study
  Country: DE (occurrence: DE)
  Receive Date: 20170620
  Receipt Date: 20171120
  Transmission Date: 20180320
  Serious: Yes (Hospitalization, Other)
  Sender: FDA-Public Use
  Company Number: PHHY2017DE090044

PATIENT
  Sex: Female
  Weight: 70 kg

DRUGS (11)
  1. COSENTYX [Suspect]
     Active Substance: SECUKINUMAB
     Dosage: 150 MG, PER APPLICATION
     Route: 065
     Dates: start: 20170723
  2. COSENTYX [Suspect]
     Active Substance: SECUKINUMAB
     Dosage: 300 MG, PER APPLICATION
     Route: 065
     Dates: start: 20170608
  3. FOSTER [Concomitant]
     Active Substance: BECLOMETHASONE\FORMOTEROL
     Indication: ASTHMA
     Dosage: UNK UNK, BID (2-0-2 PUFFS)
     Route: 055
     Dates: start: 20160501
  4. COSENTYX [Suspect]
     Active Substance: SECUKINUMAB
     Indication: PSORIASIS
     Dosage: 300 MG, PER APPLICATION
     Route: 065
     Dates: start: 20170518
  5. COSENTYX [Suspect]
     Active Substance: SECUKINUMAB
     Dosage: 150 MG, PER APPLICATION
     Route: 065
     Dates: start: 20170622
  6. SALBUTAMOL [Concomitant]
     Active Substance: ALBUTEROL
     Indication: ASTHMA
     Dosage: 1 PUFF, ON DEMAND
     Route: 055
     Dates: start: 20040101
  7. COSENTYX [Suspect]
     Active Substance: SECUKINUMAB
     Dosage: 300 MG, PER APPLICATION
     Route: 065
     Dates: start: 20170601
  8. DESOGESTREL [Concomitant]
     Active Substance: DESOGESTREL
     Indication: CONTRACEPTION
     Dosage: UNK UNK, QD (0-0-1)
     Route: 048
     Dates: start: 20170101
  9. COSENTYX [Suspect]
     Active Substance: SECUKINUMAB
     Dosage: 150 MG, PER APPLICATION
     Route: 065
     Dates: start: 20170823
  10. MIRTAZAPINE. [Concomitant]
     Active Substance: MIRTAZAPINE
     Indication: DEPRESSION
     Dosage: 0.5 DF, QD (0-0-1/2)
     Route: 048
     Dates: start: 20170412
  11. COSENTYX [Suspect]
     Active Substance: SECUKINUMAB
     Dosage: 150 MG, PER APPLICATION
     Route: 065
     Dates: start: 20170615

REACTIONS (26)
  - Diarrhoea [Recovered/Resolved]
  - Diarrhoea [Not Recovered/Not Resolved]
  - Anaphylactic reaction [Recovered/Resolved]
  - Burning sensation [Recovering/Resolving]
  - Urticaria [Recovered/Resolved]
  - Aphthous ulcer [Recovered/Resolved]
  - Vomiting [Unknown]
  - Erythema [Recovering/Resolving]
  - Migraine [Recovered/Resolved]
  - Pyrexia [Not Recovered/Not Resolved]
  - Urticaria [Unknown]
  - C-reactive protein increased [Unknown]
  - Swelling [Recovering/Resolving]
  - Oedema [Unknown]
  - Pain [Not Recovered/Not Resolved]
  - Herpes simplex [Unknown]
  - Influenza [Unknown]
  - Papule [Unknown]
  - Nasopharyngitis [Recovered/Resolved]
  - Vomiting [Recovered/Resolved]
  - Hypotension [Unknown]
  - Rash [Unknown]
  - Pruritus [Unknown]
  - Tonsillitis [Recovered/Resolved]
  - Oral herpes [Recovered/Resolved]
  - Aphthous ulcer [Unknown]

NARRATIVE: CASE EVENT DATE: 2017
